FAERS Safety Report 6112004-1 (Version None)
Quarter: 2009Q1

REPORT INFORMATION
  Report Type: 
  Country: None (occurrence: None)
  Receive Date: 20090310
  Receipt Date: 20090303
  Transmission Date: 20090719
  Serious: Yes (Other)
  Sender: FDA-Public Use
  Company Number: 2009AL001214

PATIENT
  Age: 15 Year
  Sex: Male

DRUGS (3)
  1. FLUOXETINE [Suspect]
     Indication: DEPRESSION
     Dosage: 20 MG; QD; PO
     Route: 048
     Dates: start: 20071116, end: 20080201
  2. CITALOPRAM HYDROBROMIDE [Concomitant]
  3. CANNABIS [Concomitant]

REACTIONS (6)
  - AGGRESSION [None]
  - COMPULSIONS [None]
  - DRUG DOSE OMISSION [None]
  - FEELING ABNORMAL [None]
  - HALLUCINATION, AUDITORY [None]
  - HOMICIDE [None]
